FAERS Safety Report 5755312-6 (Version None)
Quarter: 2008Q2

REPORT INFORMATION
  Report Type: 
  Country: None (occurrence: None)
  Receive Date: 20080529
  Receipt Date: 20080529
  Transmission Date: 20081010
  Serious: No
  Sender: FDA-Public Use
  Company Number: None

PATIENT
  Age: 52 Year
  Sex: Female
  Weight: 108.8633 kg

DRUGS (1)
  1. SSKI 1/G/ML UPSHER/SMITH [Suspect]
     Indication: SCAN ADRENAL GLAND
     Dosage: 5 GTTS Q6HRS PO
     Route: 048
     Dates: start: 20080526, end: 20080530

REACTIONS (2)
  - DIPLOPIA [None]
  - HEADACHE [None]
